FAERS Safety Report 6567140-2 (Version None)
Quarter: 2010Q1

REPORT INFORMATION
  Report Type: 
  Country: None (occurrence: None)
  Receive Date: 20100202
  Receipt Date: 20100128
  Transmission Date: 20100710
  Serious: Yes (Other)
  Sender: FDA-Public Use
  Company Number: JP-SANOFI-AVENTIS-2010SA005023

PATIENT
  Sex: Male

DRUGS (3)
  1. LANTUS [Suspect]
     Indication: SUICIDE ATTEMPT
     Route: 058
     Dates: end: 20100125
  2. LANTUS [Suspect]
     Dosage: INJECTED THREE AND A HALF CARTRIDGES OF INSULIN GLARGINE AT ONCE
     Route: 058
     Dates: start: 20100126, end: 20100126
  3. OPTICLICK [Suspect]
     Indication: SUICIDE ATTEMPT

REACTIONS (6)
  - CONVULSION [None]
  - FEELING HOT [None]
  - HYPERHIDROSIS [None]
  - HYPOGLYCAEMIA [None]
  - INTENTIONAL OVERDOSE [None]
  - TREMOR [None]
